FAERS Safety Report 5073580-3 (Version None)
Quarter: 2006Q3

REPORT INFORMATION
  Report Type: 
  Country: None (occurrence: None)
  Receive Date: 20060808
  Receipt Date: 20060321
  Transmission Date: 20061208
  Serious: Yes (Other)
  Sender: FDA-Public Use
  Company Number: US-GLAXOSMITHKLINE-A0598397A

PATIENT
  Age: 24 Year
  Sex: Female

DRUGS (4)
  1. LAMICTAL [Suspect]
     Indication: EPILEPSY
     Dosage: 800MGD UNKNOWN
     Route: 048
     Dates: start: 20010101
  2. KEPPRA [Suspect]
     Indication: EPILEPSY
     Route: 048
     Dates: start: 20050519, end: 20060221
  3. VITAMIN AND MINERAL PRENATAL SUPPLEMENT W/ FOLIC ACID CAP [Concomitant]
     Indication: PREGNANCY
     Route: 048
     Dates: start: 20060110
  4. FOLATE [Concomitant]
     Indication: PREGNANCY
     Route: 048
     Dates: start: 20060110

REACTIONS (2)
  - ABORTION THREATENED [None]
  - NORMAL DELIVERY [None]
